FAERS Safety Report 6810448-3 (Version None)
Quarter: 2010Q2

REPORT INFORMATION
  Report Type: 
  Country: None (occurrence: None)
  Receive Date: 20100630
  Receipt Date: 20100616
  Transmission Date: 20101027
  Serious: Yes (Hospitalization)
  Sender: FDA-Public Use
  Company Number: CH-MYLANLABS-2010S1010603

PATIENT
  Age: 25 Year
  Sex: Female

DRUGS (5)
  1. METHOTREXATE [Suspect]
     Indication: CHORIOCARCINOMA
     Route: 065
  2. FOLIC ACID [Suspect]
     Indication: CHORIOCARCINOMA
     Route: 065
  3. DACTINOMYCIN [Suspect]
     Indication: CHORIOCARCINOMA
     Route: 065
  4. ETOPOSIDE [Suspect]
     Indication: CHORIOCARCINOMA
     Route: 065
  5. VINCRISTINE [Suspect]
     Indication: CHORIOCARCINOMA
     Route: 065

REACTIONS (4)
  - LEUKOPENIA [None]
  - OVARIAN CYST [None]
  - SEPTIC SHOCK [None]
  - UTERINE PERFORATION [None]
